FAERS Safety Report 6331955-6 (Version None)
Quarter: 2009Q3

REPORT INFORMATION
  Report Type: 
  Country: None (occurrence: None)
  Receive Date: 20090828
  Receipt Date: 20090818
  Transmission Date: 20100115
  Serious: Yes (Hospitalization)
  Sender: FDA-Public Use
  Company Number: DE-BIOGENIDEC-2009BI026089

PATIENT
  Age: 61 Year
  Sex: Female

DRUGS (7)
  1. TYSABRI [Suspect]
     Indication: MULTIPLE SCLEROSIS
     Route: 042
     Dates: start: 20070228, end: 20090220
  2. FLUOXETINE [Concomitant]
     Indication: DEPRESSION
  3. MARCUMAR [Concomitant]
     Indication: THROMBOSIS
  4. HYPNOTIC [Concomitant]
  5. NSAID [Concomitant]
  6. PARACETAMOL [Concomitant]
  7. GLYBURIDE [Concomitant]

REACTIONS (2)
  - ARTERIAL OCCLUSIVE DISEASE [None]
  - DYSPNOEA [None]
